FAERS Safety Report 4383121-1 (Version None)
Quarter: 2004Q2

REPORT INFORMATION
  Report Type: 
  Country: None (occurrence: None)
  Receive Date: 20040618
  Receipt Date: 20040531
  Transmission Date: 20050107
  Serious: Yes (Hospitalization)
  Sender: FDA-Public Use
  Company Number: EWC040639482

PATIENT
  Age: 65 Year
  Sex: Male

DRUGS (3)
  1. PERMAX [Suspect]
     Indication: PARKINSON'S DISEASE
     Dosage: 1 MG/3 DAY
     Dates: start: 19990503, end: 20040510
  2. NAKOM [Concomitant]
  3. SINEMET [Concomitant]

REACTIONS (4)
  - HYDRONEPHROSIS [None]
  - RENAL FAILURE [None]
  - RETROPERITONEAL FIBROSIS [None]
  - URETERIC STENOSIS [None]
